FAERS Safety Report 22298313 (Version 3)
Quarter: 2023Q2

REPORT INFORMATION
  Report Type: Spontaneous
  Country: US (occurrence: US)
  Receive Date: 20230509
  Receipt Date: 20230522
  Transmission Date: 20230722
  Serious: No
  Sender: FDA-Public Use
  Company Number: US-002147023-NVSC2023US104949

PATIENT
  Sex: Female

DRUGS (1)
  1. XIIDRA [Suspect]
     Active Substance: LIFITEGRAST
     Indication: Product used for unknown indication
     Dosage: 5 %, BID (MG/ML)
     Route: 047
     Dates: start: 20230504

REACTIONS (2)
  - Dysgeusia [Unknown]
  - Throat irritation [Unknown]

NARRATIVE: CASE EVENT DATE: 20230505
